FAERS Safety Report 9652460 (Version 5)
Quarter: 2013Q4

REPORT INFORMATION
  Report Type: Spontaneous
  Country: FR (occurrence: FR)
  Receive Date: 20131029
  Receipt Date: 20131122
  Transmission Date: 20140711
  Serious: Yes (Other)
  Sender: FDA-Public Use
  Company Number: FR-PFIZER INC-2013306098

PATIENT
  Age: 77 Year
  Sex: Female

DRUGS (9)
  1. TAHOR [Suspect]
     Dosage: 20 MG, 1X/DAY, IN THE EVENING
     Route: 048
     Dates: start: 200206
  2. AMLOR [Suspect]
     Dosage: 5 MG, 1X/DAY, IN THE MORNING
     Route: 048
     Dates: start: 200303
  3. OLMETEC [Suspect]
     Indication: HYPERTENSION
     Dosage: 10 MG, 1X/DAY
     Route: 048
     Dates: start: 200712
  4. KARDEGIC [Suspect]
     Indication: VIRAL PERICARDITIS
     Dosage: 160 MG, UNK
     Route: 048
     Dates: start: 2002
  5. LYSANXIA [Concomitant]
     Dosage: UNK
  6. COZAAR [Concomitant]
     Dosage: UNK
     Route: 065
     Dates: start: 200404
  7. ALLOPURINOL [Concomitant]
     Dosage: UNK
     Route: 065
     Dates: start: 200404
  8. ASPIRINE [Concomitant]
     Indication: PERICARDITIS
     Dosage: 1000 MG, DAILY
     Route: 065
     Dates: start: 2006
  9. COLCHICINE [Concomitant]
     Dosage: UNK
     Route: 065
     Dates: start: 2006

REACTIONS (8)
  - Viral pericarditis [Unknown]
  - Transient ischaemic attack [Recovered/Resolved]
  - Dizziness [Not Recovered/Not Resolved]
  - Confusional state [Not Recovered/Not Resolved]
  - Fatigue [Not Recovered/Not Resolved]
  - Fall [Recovered/Resolved]
  - Effusion [Unknown]
  - Sinusitis [Recovered/Resolved]
